FAERS Safety Report 5682721-6 (Version None)
Quarter: 2008Q1

REPORT INFORMATION
  Report Type: 
  Country: None (occurrence: None)
  Receive Date: 20071212
  Receipt Date: 20071212
  Transmission Date: 20080703
  Serious: Yes (Hospitalization)
  Sender: FDA-Public Use
  Company Number: None

PATIENT
  Sex: Male
  Weight: 53.978 kg

DRUGS (2)
  1. SPRYCEL [Suspect]
     Indication: LUNG NEOPLASM MALIGNANT
     Dosage: 150MG DAILY PO
     Route: 048
     Dates: start: 20071113, end: 20071208
  2. CETUXIMAB BMS [Suspect]
     Indication: LUNG NEOPLASM MALIGNANT
     Dosage: 398MG WEEKLY IV
     Route: 042
     Dates: start: 20071114, end: 20071206

REACTIONS (1)
  - PNEUMONIA [None]
